FAERS Safety Report 17800191 (Version 1)
Quarter: 2020Q2

REPORT INFORMATION
  Report Type: Spontaneous
  Country: ES (occurrence: ES)
  Receive Date: 20200518
  Receipt Date: 20200518
  Transmission Date: 20200714
  Serious: Yes (Hospitalization, Other)
  Sender: FDA-Public Use
  Company Number: ES-ACTELION-A-CH2020-204961

PATIENT
  Age: 16 Year
  Sex: Female
  Weight: 44 kg

DRUGS (2)
  1. TRACLEER [Suspect]
     Active Substance: BOSENTAN
     Indication: PULMONARY ARTERIAL HYPERTENSION
     Route: 048
  2. AMBRISENTAN [Concomitant]
     Active Substance: AMBRISENTAN
     Dosage: 10 MG, QD

REACTIONS (8)
  - Disease progression [Unknown]
  - Infection [Unknown]
  - Device leakage [Recovered/Resolved]
  - Haemodynamic instability [Unknown]
  - Pulmonary arterial hypertension [Unknown]
  - Medical device implantation [Unknown]
  - Intra-abdominal haematoma [Unknown]
  - Abscess [Unknown]
